FAERS Safety Report 21548081 (Version 1)
Quarter: 2022Q4

REPORT INFORMATION
  Report Type: Spontaneous
  Country: KR (occurrence: KR)
  Receive Date: 20221103
  Receipt Date: 20221103
  Transmission Date: 20230113
  Serious: Yes (Other)
  Sender: FDA-Public Use
  Company Number: KR-MYLANLABS-2022M1119534

PATIENT
  Age: 85 Year
  Sex: Male

DRUGS (2)
  1. LYRICA [Suspect]
     Active Substance: PREGABALIN
     Indication: Lung carcinoma cell type unspecified stage 0
     Dosage: 150 MILLIGRAM, QD
     Route: 065
     Dates: start: 20180827, end: 20180907
  2. LYRICA [Suspect]
     Active Substance: PREGABALIN
     Indication: Lung carcinoma cell type unspecified stage 0
     Dosage: 75 MILLIGRAM, QD
     Route: 065
     Dates: start: 20180801, end: 20180826

REACTIONS (2)
  - Thrombocytopenia [Recovered/Resolved]
  - Off label use [Unknown]

NARRATIVE: CASE EVENT DATE: 20180801
